FAERS Safety Report 5525455-0 (Version None)
Quarter: 2007Q4

REPORT INFORMATION
  Report Type: 
  Country: None (occurrence: None)
  Receive Date: 20071126
  Receipt Date: 20071119
  Transmission Date: 20080405
  Serious: Yes (Hospitalization, Other)
  Sender: FDA-Public Use
  Company Number: AU-AVENTIS-200718418GDDC

PATIENT
  Age: 52 Year
  Sex: Female

DRUGS (2)
  1. LANTUS [Suspect]
     Route: 058
     Dates: start: 20070521
  2. AUTOPEN INSULIN INJECTION PEN [Suspect]
     Route: 058

REACTIONS (1)
  - LIMB INJURY [None]
